FAERS Safety Report 7549085-4 (Version None)
Quarter: 2011Q2

REPORT INFORMATION
  Report Type: 
  Country: None (occurrence: None)
  Receive Date: 20110615
  Receipt Date: 20110602
  Transmission Date: 20111010
  Serious: Yes (Hospitalization, Other)
  Sender: FDA-Public Use
  Company Number: ES-JNJFOC-20110604872

PATIENT
  Age: 78 Year
  Sex: Female

DRUGS (4)
  1. ALANERV [Concomitant]
     Indication: NEURALGIA
     Dates: start: 20090101
  2. TRAMADOL HCL [Suspect]
     Indication: NEURALGIA
     Route: 048
     Dates: start: 20090101, end: 20101201
  3. LYRICA [Suspect]
     Dates: start: 20101102, end: 20101201
  4. LYRICA [Suspect]
     Indication: NEURALGIA
     Dates: start: 20090101, end: 20101102

REACTIONS (3)
  - DYSARTHRIA [None]
  - SOMNOLENCE [None]
  - DEPRESSED LEVEL OF CONSCIOUSNESS [None]
